FAERS Safety Report 24566029 (Version 1)
Quarter: 2024Q4

REPORT INFORMATION
  Report Type: Spontaneous
  Country: US (occurrence: US)
  Receive Date: 20241030
  Receipt Date: 20241030
  Transmission Date: 20250115
  Serious: Yes (Life-Threatening, Hospitalization, Other)
  Sender: GRANULES PHARMACEUTICALS INC
  Company Number: US-GRANULES-US-2024GRALIT00510

PATIENT
  Age: 28 Year
  Sex: Female

DRUGS (1)
  1. BUPROPION HYDROCHLORIDE [Suspect]
     Active Substance: BUPROPION HYDROCHLORIDE
     Indication: Product used for unknown indication
     Route: 065

REACTIONS (5)
  - Toxic epidermal necrolysis [Recovered/Resolved]
  - Septic shock [Recovered/Resolved]
  - Respiratory tract oedema [Recovered/Resolved]
  - Left ventricular dysfunction [Recovered/Resolved]
  - Haemodynamic instability [Recovered/Resolved]
